FAERS Safety Report 5698009-3 (Version None)
Quarter: 2008Q2

REPORT INFORMATION
  Report Type: 
  Country: None (occurrence: None)
  Receive Date: 20080404
  Receipt Date: 20080404
  Transmission Date: 20081010
  Serious: Yes (Other)
  Sender: FDA-Public Use
  Company Number: None

PATIENT
  Sex: Male
  Weight: 65 kg

DRUGS (1)
  1. SINGULAIR [Suspect]
     Indication: SEASONAL ALLERGY
     Dosage: 5MG ONCE/DAY PO
     Route: 048
     Dates: start: 20071220, end: 20080327

REACTIONS (3)
  - ANGER [None]
  - SELF-INJURIOUS IDEATION [None]
  - SNORING [None]
